FAERS Safety Report 7698847-1 (Version None)
Quarter: 2011Q3

REPORT INFORMATION
  Report Type: 
  Country: None (occurrence: None)
  Receive Date: 20110819
  Receipt Date: 20080309
  Transmission Date: 20111222
  Serious: No
  Sender: FDA-Public Use
  Company Number: US-PFIZER INC-2008023393

PATIENT

DRUGS (1)
  1. CHANTIX [Suspect]

REACTIONS (3)
  - PANIC ATTACK [None]
  - WEIGHT INCREASED [None]
  - FEELING ABNORMAL [None]
